FAERS Safety Report 5113721-2 (Version None)
Quarter: 2006Q3

REPORT INFORMATION
  Report Type: 
  Country: None (occurrence: None)
  Receive Date: 20060925
  Receipt Date: 20060913
  Transmission Date: 20061208
  Serious: Yes (Hospitalization)
  Sender: FDA-Public Use
  Company Number: SE-BRISTOL-MYERS SQUIBB COMPANY-13510698

PATIENT
  Age: 72 Year
  Sex: Female

DRUGS (5)
  1. APROVEL [Suspect]
     Route: 048
     Dates: start: 20051231, end: 20060216
  2. CARDIZEM [Concomitant]
  3. ESTRADIOL [Concomitant]
  4. NOVONORM [Concomitant]
  5. PANTOPRAZOLE SODIUM [Concomitant]

REACTIONS (1)
  - MYALGIA [None]
